FAERS Safety Report 7745254-9 (Version None)
Quarter: 2011Q3

REPORT INFORMATION
  Report Type: 
  Country: None (occurrence: None)
  Receive Date: 20110819
  Receipt Date: 20110718
  Transmission Date: 20111222
  Serious: No
  Sender: FDA-Public Use
  Company Number: 037440

PATIENT
  Sex: Female
  Weight: 88.5 kg

DRUGS (3)
  1. CARBATROL [Concomitant]
  2. LACOSAMIDE [Suspect]
     Indication: CONVULSION
     Dosage: (50 MG BID, FIRST DOS 3 MONTHS, LAST DOSE 19/JUL/2011 ORAL)
     Route: 048
  3. KEPPRA [Concomitant]

REACTIONS (1)
  - CONVULSION [None]
